FAERS Safety Report 17618117 (Version 2)
Quarter: 2022Q1

REPORT INFORMATION
  Report Type: Spontaneous
  Country: US (occurrence: None)
  Receive Date: 20200402
  Receipt Date: 20220323
  Transmission Date: 20220423
  Serious: No
  Sender: FDA-Public Use
  Company Number: US-ROCHE-2405356

PATIENT
  Sex: Male
  Weight: 87.168 kg

DRUGS (7)
  1. ERIVEDGE [Suspect]
     Active Substance: VISMODEGIB
     Indication: Basal cell carcinoma
     Dosage: START DATE;? 07/AUG/2019
     Route: 065
  2. ERIVEDGE [Suspect]
     Active Substance: VISMODEGIB
     Dosage: START DATE 03/AUG/2019
     Route: 048
     Dates: end: 20191113
  3. AMOXICILLIN [Concomitant]
     Active Substance: AMOXICILLIN
     Dates: start: 20190806
  4. PRASTERONE [Concomitant]
     Active Substance: PRASTERONE
     Route: 048
     Dates: start: 20190806
  5. TESTOSTERONE [Concomitant]
     Active Substance: TESTOSTERONE
     Route: 062
     Dates: start: 20190806
  6. VITAMIN D3 [Concomitant]
     Active Substance: CHOLECALCIFEROL
     Indication: Vitamin D decreased
     Route: 048
  7. FLONASE [Concomitant]
     Active Substance: FLUTICASONE PROPIONATE

REACTIONS (14)
  - Nausea [Recovering/Resolving]
  - Fatigue [Unknown]
  - Muscle spasms [Recovered/Resolved]
  - Alopecia [Not Recovered/Not Resolved]
  - Acne [Not Recovered/Not Resolved]
  - Erythema [Not Recovered/Not Resolved]
  - Vomiting [Recovered/Resolved]
  - Neoplasm [Unknown]
  - Weight decreased [Recovering/Resolving]
  - Hyperhidrosis [Not Recovered/Not Resolved]
  - Mental impairment [Not Recovered/Not Resolved]
  - Asthenia [Recovered/Resolved]
  - Dizziness [Not Recovered/Not Resolved]
  - Weight fluctuation [Not Recovered/Not Resolved]

NARRATIVE: CASE EVENT DATE: 20190101
